FAERS Safety Report 19587107 (Version 1)
Quarter: 2021Q3

REPORT INFORMATION
  Report Type: Spontaneous
  Country: US (occurrence: US)
  Receive Date: 20210720
  Receipt Date: 20210720
  Transmission Date: 20211014
  Serious: Yes (Other)
  Sender: FDA-Public Use
  Company Number: None

PATIENT
  Sex: Male

DRUGS (1)
  1. DEXTROMPHETAMINE SULFATE 10 MG ER TABLETS [Suspect]
     Active Substance: DEXTROAMPHETAMINE SULFATE

REACTIONS (2)
  - Insomnia [None]
  - Excessive eye blinking [None]
